FAERS Safety Report 7260811-4 (Version None)
Quarter: 2011Q1

REPORT INFORMATION
  Report Type: 
  Country: None (occurrence: None)
  Receive Date: 20110130
  Receipt Date: 20101122
  Transmission Date: 20110831
  Serious: No
  Sender: FDA-Public Use
  Company Number: US-ABBOTT-10P-163-0687193-00

PATIENT
  Sex: Female
  Weight: 105.78 kg

DRUGS (4)
  1. MELOXICAM [Concomitant]
     Indication: RHEUMATOID ARTHRITIS
  2. VITAMIN D [Concomitant]
     Indication: VITAMIN SUPPLEMENTATION
  3. HUMIRA [Suspect]
     Indication: RHEUMATOID ARTHRITIS
     Dates: start: 20101010
  4. NUVIGIL [Concomitant]
     Indication: FATIGUE
     Dates: start: 20101003

REACTIONS (4)
  - ARTHRALGIA [None]
  - MUSCULOSKELETAL STIFFNESS [None]
  - JOINT SWELLING [None]
  - RHEUMATOID ARTHRITIS [None]
